FAERS Safety Report 7228993-8 (Version None)
Quarter: 2011Q1

REPORT INFORMATION
  Report Type: 
  Country: None (occurrence: None)
  Receive Date: 20110117
  Receipt Date: 20110103
  Transmission Date: 20110831
  Serious: Yes (Hospitalization)
  Sender: FDA-Public Use
  Company Number: PHHY2011DE01777

PATIENT
  Sex: Male
  Weight: 86 kg

DRUGS (5)
  1. CUBICIN [Concomitant]
     Indication: DEVICE RELATED INFECTION
  2. CYCLOSPORINE [Suspect]
     Indication: STEM CELL TRANSPLANT
     Dosage: UNK
     Route: 042
     Dates: start: 20100517, end: 20100521
  3. COTRIM [Concomitant]
     Indication: PNEUMOCYSTIS JIROVECI PNEUMONIA
     Dosage: 960 MG, Q12H, 3 DAYS A WEEK
     Route: 042
     Dates: start: 20100514, end: 20100516
  4. CUBICIN [Concomitant]
     Indication: UROSEPSIS
     Dosage: 350 MG, QD
     Route: 042
     Dates: start: 20100520, end: 20100701
  5. CIPRO [Concomitant]
     Dosage: 500 MG, QD
     Dates: start: 20100510, end: 20100520

REACTIONS (3)
  - RENAL FAILURE ACUTE [None]
  - RENAL IMPAIRMENT [None]
  - BLOOD CREATININE INCREASED [None]
